FAERS Safety Report 11677766 (Version 1)
Quarter: 2015Q4

REPORT INFORMATION
  Report Type: Not Available
  Country: US (occurrence: US)
  Receive Date: 20151028
  Receipt Date: 20151028
  Transmission Date: 20160304
  Serious: Yes (Other)
  Sender: FDA-Public Use
  Company Number: US-3M-2015-US-000353

PATIENT
  Age: 4 Year
  Sex: Male

DRUGS (2)
  1. PERIOMED [Suspect]
     Active Substance: STANNOUS FLUORIDE
     Route: 048
  2. PERIOMED [Suspect]
     Active Substance: STANNOUS FLUORIDE

REACTIONS (3)
  - Accidental exposure to product [Unknown]
  - Vomiting [Unknown]
  - Accidental exposure to product by child [None]
